FAERS Safety Report 8843257 (Version 1)
Quarter: 2012Q4

REPORT INFORMATION
  Report Type: 
  Country: MX (occurrence: MX)
  Receive Date: 20121016
  Receipt Date: 20121016
  Transmission Date: 20130627
  Serious: Yes (Hospitalization, Other)
  Sender: FDA-Public Use
  Company Number: PHHY2012MX043728

PATIENT
  Age: 60 None
  Sex: Female

DRUGS (5)
  1. EXFORGE HCT [Suspect]
     Indication: HYPERTENSION
     Dosage: 1 DF (320 mg valsar, 10 mg amlo and 25 mg hydro) daily
     Dates: start: 201203, end: 201205
  2. EXFORGE HCT [Suspect]
     Dosage: 1 DF (320 mg valsar, 10 mg amlo and 25 mg hydro) daily
     Dates: start: 201205, end: 20120731
  3. CONCOR [Concomitant]
     Indication: CARDIAC DISORDER
     Dosage: 1 DF, daily
     Dates: start: 201203
  4. EUTIROX [Concomitant]
     Indication: ENDOCRINE DISORDER
     Dosage: one day at 88 and the other day 100
  5. ZESTRIL [Concomitant]
     Indication: BLOOD PRESSURE
     Dosage: 20 mg, UNK
     Dates: start: 201203

REACTIONS (6)
  - Systemic lupus erythematosus [Recovered/Resolved with Sequelae]
  - Pulmonary congestion [Recovered/Resolved with Sequelae]
  - Asthenia [Recovered/Resolved with Sequelae]
  - Influenza [Recovered/Resolved with Sequelae]
  - Oedema peripheral [Recovering/Resolving]
  - Blood pressure inadequately controlled [Recovering/Resolving]
